FAERS Safety Report 5013888-0 (Version None)
Quarter: 2006Q2

REPORT INFORMATION
  Report Type: 
  Country: None (occurrence: None)
  Receive Date: 20060526
  Receipt Date: 20060526
  Transmission Date: 20061013
  Serious: Yes (Hospitalization)
  Sender: FDA-Public Use
  Company Number: None

PATIENT
  Age: 74 Year
  Sex: Male
  Weight: 92.9874 kg

DRUGS (3)
  1. LEVOFLOXACIN [Suspect]
     Indication: URINARY TRACT INFECTION
     Dosage: 500 MG    DAILY    IV
     Route: 042
     Dates: start: 20060505, end: 20060508
  2. CEFAZOLIN [Suspect]
     Indication: WOUND
     Dosage: 1 GM  Q8H     IV
     Route: 042
     Dates: start: 20060508, end: 20060509
  3. CEPHALEXIN [Concomitant]

REACTIONS (1)
  - DIARRHOEA [None]
